FAERS Safety Report 6517309-8 (Version None)
Quarter: 2009Q4

REPORT INFORMATION
  Report Type: 
  Country: None (occurrence: None)
  Receive Date: 20091223
  Receipt Date: 20091207
  Transmission Date: 20100525
  Serious: Yes (Other)
  Sender: FDA-Public Use
  Company Number: JP-GENENTECH-296121

PATIENT
  Sex: Female

DRUGS (1)
  1. LUCENTIS [Suspect]
     Indication: POLYPOIDAL CHOROIDAL VASCULOPATHY
     Dosage: 0.05 DF, QD
     Route: 031

REACTIONS (1)
  - ANTERIOR CHAMBER INFLAMMATION [None]
